FAERS Safety Report 15715044 (Version 2)
Quarter: 2019Q1

REPORT INFORMATION
  Report Type: Spontaneous
  Country: JP (occurrence: JP)
  Receive Date: 20181212
  Receipt Date: 20190221
  Transmission Date: 20190417
  Serious: Yes (Other)
  Sender: FDA-Public Use
  Company Number: JP-BAYER-2018-213043

PATIENT
  Age: 15 Year
  Sex: Female

DRUGS (1)
  1. YAZ [Suspect]
     Active Substance: DROSPIRENONE\ETHINYL ESTRADIOL
     Indication: DYSMENORRHOEA
     Dosage: UNK
     Route: 048

REACTIONS (4)
  - Cushing^s syndrome [Unknown]
  - Contraindicated product administered [None]
  - Product monitoring error [None]
  - Blood corticotrophin decreased [Unknown]

NARRATIVE: CASE EVENT DATE: 20181115
